FAERS Safety Report 4780257-8 (Version None)
Quarter: 2005Q3

REPORT INFORMATION
  Report Type: 
  Country: None (occurrence: None)
  Receive Date: 20050914
  Receipt Date: 20050713
  Transmission Date: 20060218
  Serious: Yes (Hospitalization)
  Sender: FDA-Public Use
  Company Number: 163-20785-05070225 (0)

PATIENT
  Age: 63 Year
  Sex: Female

DRUGS (9)
  1. THALOMID [Suspect]
     Indication: MULTIPLE MYELOMA
     Dosage: 200 MG, QD, ORAL
     Route: 048
     Dates: start: 20050513, end: 20050516
  2. BORTEZOMIB (BORTEZOMIB) [Suspect]
     Indication: MULTIPLE MYELOMA
     Dosage: 1.8 MG, DAILY, INTRAVENOUS
     Route: 042
     Dates: start: 20050510
  3. BORTEZOMIB (BORTEZOMIB) [Suspect]
     Indication: MULTIPLE MYELOMA
     Dosage: 1.8 MG, DAILY, INTRAVENOUS
     Route: 042
     Dates: start: 20050513
  4. BORTEZOMIB (BORTEZOMIB) [Suspect]
     Indication: MULTIPLE MYELOMA
     Dosage: 1.8 MG, DAILY, INTRAVENOUS
     Route: 042
     Dates: start: 20050517
  5. BORTEZOMIB (BORTEZOMIB) [Suspect]
     Indication: MULTIPLE MYELOMA
     Dosage: 1.8 MG, DAILY, INTRAVENOUS
     Route: 042
     Dates: start: 20050522
  6. DEXAMETHASONE [Suspect]
     Indication: MULTIPLE MYELOMA
     Dosage: 40 MG, QD, ORAL
     Route: 048
     Dates: start: 20050513, end: 20050516
  7. ADRIAMYCIN PFS [Suspect]
     Indication: MULTIPLE MYELOMA
     Dosage: 18 MG, QD, ORAL
     Route: 048
     Dates: start: 20050513, end: 20050516
  8. CYCLOPHOSPHAMIDE [Suspect]
     Indication: MULTIPLE MYELOMA
     Dosage: 720MG, QD, ORAL
     Route: 048
     Dates: start: 20050513, end: 20050516
  9. ETOPOSIDE [Suspect]
     Indication: MULTIPLE MYELOMA
     Dosage: 72 MG, QD,ORAL
     Route: 048
     Dates: start: 20050513, end: 20050516

REACTIONS (3)
  - ATRIAL FIBRILLATION [None]
  - BODY TEMPERATURE INCREASED [None]
  - LEUKOPENIA [None]
